FAERS Safety Report 11646972 (Version 3)
Quarter: 2017Q3

REPORT INFORMATION
  Report Type: Report from Study
  Country: US (occurrence: US)
  Receive Date: 20151020
  Receipt Date: 20170918
  Transmission Date: 20171127
  Serious: Yes (Other)
  Sender: FDA-Public Use
  Company Number: US-AMGEN-USASP2015106823

PATIENT
  Age: 71 Year
  Sex: Female
  Weight: 58.97 kg

DRUGS (2)
  1. ARAVA [Concomitant]
     Active Substance: LEFLUNOMIDE
     Dosage: UNK
  2. ENBREL [Suspect]
     Active Substance: ETANERCEPT
     Indication: RHEUMATOID ARTHRITIS
     Dosage: UNK UNK, QWK
     Route: 065
     Dates: start: 1998

REACTIONS (4)
  - Impaired work ability [Unknown]
  - Rheumatoid arthritis [Unknown]
  - Body height decreased [Unknown]
  - Drug effect decreased [Unknown]
